FAERS Safety Report 9500136 (Version 1)
Quarter: 2013Q3

REPORT INFORMATION
  Report Type: Spontaneous
  Country: US (occurrence: None)
  Receive Date: 20130903
  Receipt Date: 20130903
  Transmission Date: 20140515
  Serious: Yes (Congenital Anomaly, Other)
  Sender: FDA-Public Use
  Company Number: SYM-2013-10025

PATIENT
  Sex: 0

DRUGS (2)
  1. BUPROPION HCL [Suspect]
     Indication: DEPRESSION
     Route: 064
  2. STEROID [Suspect]
     Indication: PRODUCT USED FOR UNKNOWN INDICATION

REACTIONS (8)
  - Congenital tricuspid valve atresia [None]
  - Maternal drugs affecting foetus [None]
  - Ventricular septal defect [None]
  - Patent ductus arteriosus [None]
  - Caesarean section [None]
  - Cardiomegaly [None]
  - Premature baby [None]
  - Lung disorder [None]
